FAERS Safety Report 5282439-8 (Version None)
Quarter: 2007Q1

REPORT INFORMATION
  Report Type: 
  Country: None (occurrence: None)
  Receive Date: 20070326
  Receipt Date: 20070313
  Transmission Date: 20070707
  Serious: Yes (Hospitalization)
  Sender: FDA-Public Use
  Company Number: B0463074A

PATIENT
  Age: 33 Year
  Sex: Male

DRUGS (1)
  1. LAMICTAL [Suspect]

REACTIONS (3)
  - HEPATITIS [None]
  - LEUKOPENIA [None]
  - STEVENS-JOHNSON SYNDROME [None]
